FAERS Safety Report 25351052 (Version 1)
Quarter: 2025Q2

REPORT INFORMATION
  Report Type: Spontaneous
  Country: DE (occurrence: DE)
  Receive Date: 20250523
  Receipt Date: 20250523
  Transmission Date: 20250717
  Serious: Yes (Other)
  Sender: HIKMA
  Company Number: None

PATIENT
  Age: 48 Year
  Sex: Female
  Weight: 100 kg

DRUGS (3)
  1. PACLITAXEL [Suspect]
     Active Substance: PACLITAXEL
     Indication: Product used for unknown indication
     Route: 042
     Dates: start: 20250403, end: 20250403
  2. PACLITAXEL [Suspect]
     Active Substance: PACLITAXEL
     Indication: Breast cancer female
     Route: 042
     Dates: start: 20250410
  3. GRANISETRON [Concomitant]
     Active Substance: GRANISETRON
     Indication: Product used for unknown indication
     Route: 042

REACTIONS (7)
  - Erythema [Recovered/Resolved]
  - Feeling hot [Recovered/Resolved]
  - Throat tightness [Recovered/Resolved]
  - Dyspnoea [Recovered/Resolved]
  - Blood pressure increased [Recovered/Resolved]
  - Heart rate increased [Recovered/Resolved]
  - Malaise [Recovered/Resolved]

NARRATIVE: CASE EVENT DATE: 20250403
